FAERS Safety Report 6458677-5 (Version None)
Quarter: 2009Q4

REPORT INFORMATION
  Report Type: 
  Country: None (occurrence: None)
  Receive Date: 20091127
  Receipt Date: 20091118
  Transmission Date: 20100525
  Serious: Yes (Hospitalization)
  Sender: FDA-Public Use
  Company Number: JP-SP-2004-02275

PATIENT
  Age: 73 Year
  Sex: Male

DRUGS (2)
  1. IMMUCYST [Suspect]
     Indication: BLADDER CANCER
     Route: 043
     Dates: start: 20040507, end: 20040528
  2. IMMUCYST [Suspect]
     Route: 043
     Dates: start: 20040507, end: 20040528

REACTIONS (11)
  - BOVINE TUBERCULOSIS [None]
  - COUGH [None]
  - DISSEMINATED TUBERCULOSIS [None]
  - HAEMATURIA [None]
  - INCORRECT DOSE ADMINISTERED [None]
  - INFLAMMATION [None]
  - JAUNDICE [None]
  - LIVER FUNCTION TEST ABNORMAL [None]
  - OXYGEN SATURATION DECREASED [None]
  - PYREXIA [None]
  - WHITE BLOOD CELL COUNT DECREASED [None]
